FAERS Safety Report 4749794-6 (Version None)
Quarter: 2005Q3

REPORT INFORMATION
  Report Type: 
  Country: None (occurrence: None)
  Receive Date: 20050819
  Receipt Date: 20050819
  Transmission Date: 20060218
  Serious: No
  Sender: FDA-Public Use
  Company Number: None

PATIENT
  Age: 51 Year
  Sex: Female
  Weight: 63 kg

DRUGS (5)
  1. AUGMENTIN '500' [Suspect]
     Dosage: 500 TWO PO BID
     Route: 048
  2. TOPROL-XL [Concomitant]
  3. DIOVAN [Concomitant]
  4. DARVOCET [Concomitant]
  5. IBUPROFEN [Concomitant]

REACTIONS (1)
  - SUPRAVENTRICULAR TACHYCARDIA [None]
